FAERS Safety Report 18209612 (Version 1)
Quarter: 2020Q3

REPORT INFORMATION
  Report Type: Spontaneous
  Country: US (occurrence: US)
  Receive Date: 20200828
  Receipt Date: 20200828
  Transmission Date: 20201103
  Serious: No
  Sender: FDA-Public Use
  Company Number: US-ELI_LILLY_AND_COMPANY-US202008003436

PATIENT
  Age: 30 Year
  Sex: Male

DRUGS (2)
  1. EMGALITY [Suspect]
     Active Substance: GALCANEZUMAB-GNLM
     Indication: CLUSTER HEADACHE
     Dosage: 120 MG, UNKNOWN
     Route: 058
  2. EMGALITY [Suspect]
     Active Substance: GALCANEZUMAB-GNLM
     Indication: MIGRAINE
     Dosage: UNK UNK, UNKNOWN
     Route: 058
     Dates: start: 202007

REACTIONS (1)
  - Injection site haemorrhage [Unknown]

NARRATIVE: CASE EVENT DATE: 20200807
